FAERS Safety Report 20027368 (Version 1)
Quarter: 2021Q4

REPORT INFORMATION
  Report Type: Report from Study
  Country: US (occurrence: US)
  Receive Date: 20211103
  Receipt Date: 20211103
  Transmission Date: 20220303
  Serious: Yes (Hospitalization, Other)
  Sender: FDA-Public Use
  Company Number: US-Taiho Oncology Inc-EU-2021-01307

PATIENT
  Age: 73 Year
  Sex: Male

DRUGS (19)
  1. LONSURF [Suspect]
     Active Substance: TIPIRACIL HYDROCHLORIDE\TRIFLURIDINE
     Indication: Colon cancer metastatic
     Dosage: CYCLE 1
     Route: 048
     Dates: start: 20200708
  2. ZOMETA [Concomitant]
     Active Substance: ZOLEDRONIC ACID
     Route: 042
     Dates: start: 20190919, end: 20210125
  3. ZOFRAN [Concomitant]
     Active Substance: ONDANSETRON HYDROCHLORIDE
     Indication: Nausea
     Route: 048
  4. ZOFRAN [Concomitant]
     Active Substance: ONDANSETRON HYDROCHLORIDE
     Indication: Vomiting
  5. LIPITOR [Concomitant]
     Active Substance: ATORVASTATIN CALCIUM
     Route: 048
  6. ROXICODONE [Concomitant]
     Active Substance: OXYCODONE HYDROCHLORIDE
     Indication: Pain
     Dosage: 5-10 MG, TAKE 1-2 TABLETS BY MOUTH TWICE DAILY AS NEEDED
     Route: 048
  7. VIRAMUNE XR [Concomitant]
     Active Substance: NEVIRAPINE
     Route: 048
  8. ROZEREM [Concomitant]
     Active Substance: RAMELTEON
     Dosage: 1 TABLET BY MOUTH DAILY WITHIN 30 MINUTES OF BEDTIME
     Route: 048
  9. NEURONTIN [Concomitant]
     Active Substance: GABAPENTIN
     Route: 048
  10. XARELTO [Concomitant]
     Active Substance: RIVAROXABAN
     Dosage: TAKE 1 TABLET BY MOUTH DAILY WITH EVENING MEAL
     Route: 048
  11. TYLENOL [Concomitant]
     Active Substance: ACETAMINOPHEN
     Indication: Pain
     Dosage: AS NEEDED
     Route: 048
  12. DOCUSATE SODIUM [Concomitant]
     Active Substance: DOCUSATE SODIUM
     Route: 048
  13. SENOKOT [Concomitant]
     Active Substance: SENNOSIDES
     Route: 048
  14. MEGACE [Concomitant]
     Active Substance: MEGESTROL ACETATE
     Dosage: 40 MG/ML ORAL SUSPENSION, TAKE 5 ML (200 MG) BY MOUTH DAILY
     Route: 048
  15. NARCAN [Concomitant]
     Active Substance: NALOXONE HYDROCHLORIDE
     Dosage: 4 MG/0.1 ML NASAL SPRAY
     Route: 045
  16. WELLBUTRIN XL [Concomitant]
     Active Substance: BUPROPION HYDROCHLORIDE
     Route: 048
  17. EPZICOM [Concomitant]
     Active Substance: ABACAVIR SULFATE\LAMIVUDINE
     Dosage: 600-300 MG, TAKE 1 TABLET BY MOUTH DAILY
     Route: 048
  18. OSCAL + D [Concomitant]
     Dosage: 500-200 MG, TAKE 1 TABLET BY MOUTH DAILY
     Route: 048
  19. TAB-A-VITE [Concomitant]
     Route: 048

REACTIONS (17)
  - Chronic obstructive pulmonary disease [Unknown]
  - Dyspnoea exertional [Unknown]
  - Malignant neoplasm of spinal cord [Unknown]
  - Chest pain [Unknown]
  - Pain in extremity [Unknown]
  - Arteriosclerosis coronary artery [Unknown]
  - Back injury [Recovered/Resolved]
  - Constipation [Unknown]
  - Pulmonary embolism [Unknown]
  - Haemoglobin decreased [Unknown]
  - Neutropenia [Unknown]
  - Platelet count decreased [Unknown]
  - Nausea [Recovering/Resolving]
  - Decreased appetite [Unknown]
  - Abdominal pain upper [Unknown]
  - Fatigue [Unknown]
  - Leukopenia [Unknown]

NARRATIVE: CASE EVENT DATE: 20200803
